FAERS Safety Report 9335713 (Version 1)
Quarter: 2013Q2

REPORT INFORMATION
  Report Type: Report from Study
  Country: US (occurrence: US)
  Receive Date: 20130605
  Receipt Date: 20130605
  Transmission Date: 20140414
  Serious: Yes (Other)
  Sender: FDA-Public Use
  Company Number: US-ROCHE-1217813

PATIENT
  Age: 69 Year
  Sex: Female
  Weight: 104.42 kg

DRUGS (1)
  1. XOLAIR [Suspect]
     Indication: ASTHMA
     Dosage: 2 INJECTIONS
     Route: 058
     Dates: start: 20061201

REACTIONS (4)
  - Bone loss [Not Recovered/Not Resolved]
  - Dental operation [Recovered/Resolved]
  - Eosinophilia [Not Recovered/Not Resolved]
  - White blood cell count increased [Unknown]
